FAERS Safety Report 11387225 (Version 1)
Quarter: 2015Q3

REPORT INFORMATION
  Report Type: Spontaneous
  Country: US (occurrence: US)
  Receive Date: 20150817
  Receipt Date: 20150817
  Transmission Date: 20151125
  Serious: No
  Sender: FDA-Public Use
  Company Number: US-SUN PHARMACEUTICAL INDUSTRIES LTD-2014SUN02571

PATIENT

DRUGS (1)
  1. TRAMADOL HYDROCHLORIDE. [Suspect]
     Active Substance: TRAMADOL HYDROCHLORIDE
     Indication: FIBROMYALGIA
     Dosage: 2 DF EVERY FOUR HOURS
     Route: 048
     Dates: start: 2014, end: 2014

REACTIONS (2)
  - Eye irritation [Recovered/Resolved]
  - Eye movement disorder [Recovered/Resolved]

NARRATIVE: CASE EVENT DATE: 2014
